APPROVED DRUG PRODUCT: ISOSORBIDE DINITRATE
Active Ingredient: ISOSORBIDE DINITRATE
Strength: 30MG
Dosage Form/Route: TABLET;ORAL
Application: A040591 | Product #001
Applicant: HIKMA INTERNATIONAL PHARMACEUTICALS LLC
Approved: Jan 10, 2007 | RLD: No | RS: No | Type: DISCN